FAERS Safety Report 21332359 (Version 1)
Quarter: 2022Q3

REPORT INFORMATION
  Report Type: Spontaneous
  Country: US (occurrence: None)
  Receive Date: 20220913
  Receipt Date: 20220913
  Transmission Date: 20221026
  Serious: Yes (Hospitalization)
  Sender: FDA-Public Use
  Company Number: None

PATIENT
  Age: 61 Year
  Sex: Male
  Weight: 98.55 kg

DRUGS (1)
  1. PAXLOVID [Suspect]
     Active Substance: NIRMATRELVIR\RITONAVIR
     Indication: COVID-19
     Dates: start: 20220803, end: 20220806

REACTIONS (6)
  - Acute kidney injury [None]
  - Device dependence [None]
  - Urine output decreased [None]
  - Hypophagia [None]
  - Chromaturia [None]
  - Abdominal pain [None]

NARRATIVE: CASE EVENT DATE: 20220806
